FAERS Safety Report 17411329 (Version 8)
Quarter: 2021Q1

REPORT INFORMATION
  Report Type: Report from Study
  Country: US (occurrence: US)
  Receive Date: 20200212
  Receipt Date: 20210308
  Transmission Date: 20210419
  Serious: No
  Sender: FDA-Public Use
  Company Number: NVSC2020US038930

PATIENT
  Age: 47 Year
  Sex: Female

DRUGS (3)
  1. COSENTYX [Suspect]
     Active Substance: SECUKINUMAB
     Indication: PSORIASIS
     Dosage: 300 MG, QW
     Route: 058
  2. COSENTYX [Suspect]
     Active Substance: SECUKINUMAB
     Indication: PSORIASIS
     Dosage: 300 MG, QMO
     Route: 058
  3. METHOTREXATE. [Suspect]
     Active Substance: METHOTREXATE
     Indication: PRODUCT USED FOR UNKNOWN INDICATION
     Dosage: UNK
     Route: 065

REACTIONS (16)
  - Hepatic enzyme increased [Unknown]
  - Herpes zoster [Recovered/Resolved]
  - Psoriasis [Recovered/Resolved with Sequelae]
  - Injection site paraesthesia [Unknown]
  - Drug ineffective [Unknown]
  - Symptom recurrence [Recovered/Resolved with Sequelae]
  - Headache [Unknown]
  - Injection site pain [Recovered/Resolved]
  - Product dose omission issue [Unknown]
  - Stress [Recovering/Resolving]
  - Depression [Recovering/Resolving]
  - Injection site bruising [Recovered/Resolved]
  - Somnolence [Unknown]
  - Arthralgia [Recovered/Resolved with Sequelae]
  - Liver function test increased [Unknown]
  - Injection site hypoaesthesia [Unknown]

NARRATIVE: CASE EVENT DATE: 20200204
